FAERS Safety Report 7210693-1 (Version None)
Quarter: 2011Q1

REPORT INFORMATION
  Report Type: 
  Country: None (occurrence: None)
  Receive Date: 20110105
  Receipt Date: 20101228
  Transmission Date: 20110831
  Serious: Yes (Other)
  Sender: FDA-Public Use
  Company Number: US-PFIZER INC-HQWYE705430NOV04

PATIENT
  Sex: Female
  Weight: 78 kg

DRUGS (4)
  1. PREMPRO [Suspect]
     Indication: HORMONE REPLACEMENT THERAPY
     Dosage: 0.625/2.5MG
     Route: 048
     Dates: start: 19920101, end: 20030101
  2. LISINOPRIL [Concomitant]
     Indication: HYPERTENSION
     Dosage: UNK
     Dates: start: 20020101
  3. ESTRACE [Suspect]
     Indication: HORMONE REPLACEMENT THERAPY
     Dosage: UNK
     Dates: start: 19920101, end: 20030101
  4. PROVERA [Suspect]
     Indication: HORMONE REPLACEMENT THERAPY
     Dosage: 2.5 MG, UNK
     Route: 048
     Dates: start: 19920101, end: 20030101

REACTIONS (1)
  - BREAST CANCER FEMALE [None]
